FAERS Safety Report 7707713-4 (Version None)
Quarter: 2011Q3

REPORT INFORMATION
  Report Type: 
  Country: None (occurrence: None)
  Receive Date: 20110824
  Receipt Date: 20110818
  Transmission Date: 20111222
  Serious: Yes (Hospitalization)
  Sender: FDA-Public Use
  Company Number: US-B.I. PHARMACEUTICALS,INC./RIDGEFIELD-2011-DE-04673GD

PATIENT
  Age: 88 Year
  Sex: Female

DRUGS (6)
  1. LISINOPRIL [Concomitant]
     Indication: HYPERTENSION
     Dosage: 40 MG
  2. HYDRALAZINE HCL [Concomitant]
     Indication: HYPERTENSION
     Dosage: 100 MG
  3. CHLORTHALIDONE [Concomitant]
     Indication: HYPERTENSION
     Dosage: 25 MG
  4. CLONIDINE [Suspect]
     Indication: HYPERTENSION
     Dosage: 0.3 MG
     Route: 061
  5. DILTIAZEM [Suspect]
     Indication: HYPERTENSION
     Dosage: 180 MG
  6. METOPROLOL [Suspect]
     Indication: HYPERTENSION
     Dosage: 100 MG

REACTIONS (3)
  - NODAL RHYTHM [None]
  - PRESYNCOPE [None]
  - BRADYCARDIA [None]
